FAERS Safety Report 11580625 (Version 4)
Quarter: 2015Q4

REPORT INFORMATION
  Report Type: Spontaneous
  Country: US (occurrence: US)
  Receive Date: 20150930
  Receipt Date: 20151118
  Transmission Date: 20160304
  Serious: No
  Sender: FDA-Public Use
  Company Number: PHEH2015US019143

PATIENT

DRUGS (1)
  1. ESTRADIOL. [Suspect]
     Active Substance: ESTRADIOL
     Indication: PRODUCT USED FOR UNKNOWN INDICATION
     Dosage: UNK
     Route: 062

REACTIONS (7)
  - Feeling abnormal [Unknown]
  - Feeling jittery [Unknown]
  - Decreased appetite [Unknown]
  - Anger [Unknown]
  - Insomnia [Unknown]
  - Anxiety [Unknown]
  - Hot flush [Unknown]
